FAERS Safety Report 10029582 (Version 1)
Quarter: 2014Q1

REPORT INFORMATION
  Report Type: Spontaneous
  Country: US (occurrence: None)
  Receive Date: 20140320
  Receipt Date: 20140320
  Transmission Date: 20141002
  Serious: Yes (Disabling)
  Sender: FDA-Public Use
  Company Number: None

PATIENT
  Age: 36 Year
  Sex: Female
  Weight: 104.33 kg

DRUGS (2)
  1. TOPAMAX [Suspect]
     Indication: MIGRAINE
     Dosage: 25MG AT BEDTIME TAKEN BY MOUTH
     Route: 048
     Dates: start: 20140224, end: 20140306
  2. WELLBUTRIN XL 150MG BIOVAIL [Suspect]
     Indication: FATIGUE
     Dosage: 1 PILL  ONCE DAILY TAKEN BY MOUTH
     Route: 048
     Dates: start: 20140221, end: 20140306

REACTIONS (3)
  - Hypoaesthesia oral [None]
  - Eyelid ptosis [None]
  - Movement disorder [None]
